FAERS Safety Report 8093971-6 (Version None)
Quarter: 2012Q1

REPORT INFORMATION
  Report Type: 
  Country: None (occurrence: None)
  Receive Date: 20120130
  Receipt Date: 20111229
  Transmission Date: 20120608
  Serious: Yes (Other)
  Sender: FDA-Public Use
  Company Number: DE-ELI_LILLY_AND_COMPANY-DE201112004965

PATIENT
  Sex: Female

DRUGS (9)
  1. NEBIVOLOL [Concomitant]
  2. SPASMEX [Concomitant]
  3. CYMBALTA [Suspect]
     Indication: DEPRESSION
     Dosage: 60 MG, UNKNOWN
     Route: 048
     Dates: start: 20070101, end: 20110920
  4. TORSEMIDE [Concomitant]
  5. ASPIRIN [Concomitant]
     Dosage: 100 DF, UNK
  6. SIMVASTATIN [Concomitant]
  7. ENALAPRIL [Concomitant]
  8. ACTRAPID                           /00030501/ [Concomitant]
  9. OMEPRAZOLE [Concomitant]

REACTIONS (1)
  - GAMMA-GLUTAMYLTRANSFERASE INCREASED [None]
